FAERS Safety Report 16024708 (Version 1)
Quarter: 2019Q1

REPORT INFORMATION
  Report Type: Spontaneous
  Country: MY (occurrence: MY)
  Receive Date: 20190301
  Receipt Date: 20190301
  Transmission Date: 20190418
  Serious: Yes (Other)
  Sender: FDA-Public Use
  Company Number: MY-FRESENIUS KABI-FK201902151

PATIENT
  Age: 53 Year
  Sex: Female

DRUGS (1)
  1. ROCURONIUMBROMID KABI 10 MG/ML [Suspect]
     Active Substance: ROCURONIUM BROMIDE
     Indication: HYPOTONIA
     Route: 042

REACTIONS (1)
  - Anaphylactic shock [Recovering/Resolving]
